FAERS Safety Report 11880543 (Version 5)
Quarter: 2016Q2

REPORT INFORMATION
  Report Type: Spontaneous
  Country: US (occurrence: US)
  Receive Date: 20151230
  Receipt Date: 20160623
  Transmission Date: 20160815
  Serious: Yes (Hospitalization)
  Sender: FDA-Public Use
  Company Number: US-TEVA-621168USA

PATIENT
  Age: 62 Year
  Sex: Male
  Weight: 68.7 kg

DRUGS (10)
  1. ATIVAN [Concomitant]
     Active Substance: LORAZEPAM
     Dates: start: 20150623
  2. FLUOROURACIL. [Suspect]
     Active Substance: FLUOROURACIL
     Indication: PANCREATIC CARCINOMA METASTATIC
     Dosage: 1800 MG IVCL
     Dates: start: 20150727, end: 20150727
  3. INCB18424 (CODE NOT BROKEN) [Suspect]
     Active Substance: RUXOLITINIB
     Indication: PANCREATIC CARCINOMA METASTATIC
     Dosage: REGIMENT 1
     Route: 048
     Dates: start: 20150708, end: 20150720
  4. FENTANYL. [Concomitant]
     Active Substance: FENTANYL
     Route: 062
     Dates: start: 20150727
  5. LEUCOVORIN. [Suspect]
     Active Substance: LEUCOVORIN
     Indication: PANCREATIC CARCINOMA METASTATIC
     Route: 040
     Dates: start: 20150727, end: 20150727
  6. DILAUDID [Concomitant]
     Active Substance: HYDROMORPHONE HYDROCHLORIDE
     Dates: start: 20150123
  7. OXALIPLATIN. [Suspect]
     Active Substance: OXALIPLATIN
     Indication: PANCREATIC CARCINOMA METASTATIC
     Route: 040
     Dates: start: 20150727, end: 20150727
  8. OLANZAPINE. [Concomitant]
     Active Substance: OLANZAPINE
     Dates: start: 20150713
  9. FLUOROURACIL. [Suspect]
     Active Substance: FLUOROURACIL
     Route: 040
     Dates: start: 20150727, end: 20150727
  10. BLINDED CAPECITABINE [Suspect]
     Active Substance: CAPECITABINE
     Indication: PANCREATIC CARCINOMA METASTATIC
     Dosage: REGIMENT 2
     Route: 065
     Dates: start: 20150708, end: 20150720

REACTIONS (3)
  - Nausea [Recovered/Resolved]
  - Abdominal pain [Recovered/Resolved]
  - Dehydration [Recovered/Resolved]

NARRATIVE: CASE EVENT DATE: 20150731
